FAERS Safety Report 21459933 (Version 2)
Quarter: 2022Q4

REPORT INFORMATION
  Report Type: Spontaneous
  Country: IT (occurrence: IT)
  Receive Date: 20221014
  Receipt Date: 20221108
  Transmission Date: 20230113
  Serious: Yes (Death, Other)
  Sender: FDA-Public Use
  Company Number: IT-GILEAD-2022-0601387

PATIENT
  Age: 70 Year
  Sex: Male

DRUGS (1)
  1. YESCARTA [Suspect]
     Active Substance: AXICABTAGENE CILOLEUCEL
     Indication: Diffuse large B-cell lymphoma
     Dosage: UNK, ^INFUSED^
     Route: 065
     Dates: start: 20211201, end: 20211201

REACTIONS (2)
  - Death [Fatal]
  - Aspergillus infection [Unknown]

NARRATIVE: CASE EVENT DATE: 20211229
